FAERS Safety Report 7463822-9 (Version None)
Quarter: 2011Q2

REPORT INFORMATION
  Report Type: 
  Country: None (occurrence: None)
  Receive Date: 20110506
  Receipt Date: 20110424
  Transmission Date: 20111010
  Serious: Yes (Other)
  Sender: FDA-Public Use
  Company Number: US-JNJFOC-20110410603

PATIENT
  Sex: Female
  Weight: 61.24 kg

DRUGS (5)
  1. PREDNISONE [Concomitant]
     Indication: CROHN'S DISEASE
  2. REMICADE [Suspect]
     Route: 042
  3. OXYCODONE [Concomitant]
     Indication: PAIN
     Route: 048
  4. EFFEXOR [Concomitant]
     Indication: DEPRESSION
     Route: 048
  5. REMICADE [Suspect]
     Indication: CROHN'S DISEASE
     Route: 042

REACTIONS (8)
  - DEPRESSION [None]
  - SKIN MASS [None]
  - PSORIASIS [None]
  - WEIGHT INCREASED [None]
  - FRACTURE [None]
  - CELLULITIS [None]
  - SQUAMOUS CELL CARCINOMA [None]
  - SKIN DISORDER [None]
